FAERS Safety Report 18144876 (Version 1)
Quarter: 2020Q3

REPORT INFORMATION
  Report Type: Spontaneous
  Country: US (occurrence: US)
  Receive Date: 20200813
  Receipt Date: 20200813
  Transmission Date: 20201103
  Serious: Yes (Hospitalization)
  Sender: FDA-Public Use
  Company Number: None

PATIENT
  Age: 61 Year
  Sex: Female

DRUGS (7)
  1. BENZONATATE. [Concomitant]
     Active Substance: BENZONATATE
  2. AMLODIPINE [Concomitant]
     Active Substance: AMLODIPINE BESYLATE
  3. VALSART/HCZ [Concomitant]
  4. HUMIRA [Suspect]
     Active Substance: ADALIMUMAB
     Indication: PROCTITIS ULCERATIVE
     Dosage: ?          OTHER DOSE:2 PENS;OTHER FREQUENCY:D 1 + D 15;?
     Route: 058
     Dates: start: 20200625
  5. LIALDA [Concomitant]
     Active Substance: MESALAMINE
  6. BUDESONIDE. [Concomitant]
     Active Substance: BUDESONIDE
  7. MESALAMINE. [Concomitant]
     Active Substance: MESALAMINE

REACTIONS (6)
  - Illness [None]
  - Fatigue [None]
  - Therapy interrupted [None]
  - Weight fluctuation [None]
  - Cough [None]
  - Feeling abnormal [None]

NARRATIVE: CASE EVENT DATE: 20200807
